FAERS Safety Report 13038631 (Version 3)
Quarter: 2017Q1

REPORT INFORMATION
  Report Type: Report from Study
  Country: JP (occurrence: JP)
  Receive Date: 20161219
  Receipt Date: 20170322
  Transmission Date: 20170428
  Serious: No
  Sender: FDA-Public Use
  Company Number: JP-AEGERION PHARMACEUTICAL INC.-AEGR002391

PATIENT

DRUGS (2)
  1. METRELEPTIN SHIONOGI [Suspect]
     Active Substance: METRELEPTIN
     Dosage: 3.83 MG, UNK
     Route: 058
  2. METRELEPTIN SHIONOGI [Suspect]
     Active Substance: METRELEPTIN
     Indication: PRODUCT USED FOR UNKNOWN INDICATION
     Dosage: 3.83 MG, QD
     Route: 058

REACTIONS (3)
  - Metabolic disorder [Recovering/Resolving]
  - Hepatic steatosis [Recovered/Resolved]
  - Intentional product misuse [Unknown]
